FAERS Safety Report 8922552 (Version 2)
Quarter: 2013Q1

REPORT INFORMATION
  Report Type: Spontaneous
  Country: BE (occurrence: BE)
  Receive Date: 20121123
  Receipt Date: 20130221
  Transmission Date: 20140127
  Serious: Yes (Hospitalization)
  Sender: FDA-Public Use
  Company Number: BE-MERCK-1211BEL008925

PATIENT
  Age: 68 Year
  Sex: Male

DRUGS (12)
  1. NOXAFIL [Suspect]
     Indication: ACUTE MYELOID LEUKAEMIA
     Dosage: 200 MG, TID
     Dates: start: 20120710, end: 20120831
  2. CYTARABINE (+) DAUNORUBICIN [Concomitant]
     Indication: HAEMATOLOGICAL MALIGNANCY
     Dosage: UNK
     Dates: start: 20120710, end: 20120715
  3. CYTARABINE (+) DAUNORUBICIN [Concomitant]
     Dosage: UNK
     Dates: start: 20120814, end: 20120819
  4. PANTOMED (DEXPANTHENOL) [Concomitant]
     Dosage: 40 MG, QD
  5. ZOVIRAX [Concomitant]
     Dosage: 800 MG, QD
  6. TAZOCIN [Concomitant]
     Dosage: UNK
     Dates: start: 20120824
  7. MOTILIUM [Concomitant]
  8. DENTIO [Concomitant]
  9. HYABAK [Concomitant]
  10. MAXITROL [Concomitant]
  11. LORAMET [Concomitant]
     Indication: INSOMNIA
     Dosage: UNK
  12. ARTEOPTIC [Concomitant]

REACTIONS (2)
  - Fungal infection [Recovered/Resolved]
  - Neutropenia [Recovered/Resolved]
